FAERS Safety Report 13142356 (Version 1)
Quarter: 2017Q1

REPORT INFORMATION
  Report Type: Spontaneous
  Country: JP (occurrence: JP)
  Receive Date: 20170123
  Receipt Date: 20170123
  Transmission Date: 20170428
  Serious: Yes (Other)
  Sender: FDA-Public Use
  Company Number: JP-PFIZER INC-2017027494

PATIENT

DRUGS (2)
  1. LYRICA [Suspect]
     Active Substance: PREGABALIN
     Dosage: 100 MG, 2X/DAY AFTER BREAKFAST AND DINNER
     Route: 048
  2. LYRICA [Suspect]
     Active Substance: PREGABALIN
     Dosage: 25 MG, 2X/DAY AFTER BREAKFAST AND DINNER
     Route: 048

REACTIONS (4)
  - Drooling [Unknown]
  - Dizziness [Unknown]
  - Dementia [Unknown]
  - Fall [Unknown]
